FAERS Safety Report 18976068 (Version 2)
Quarter: 2021Q1

REPORT INFORMATION
  Report Type: Report from Study
  Country: CA (occurrence: CA)
  Receive Date: 20210306
  Receipt Date: 20210326
  Transmission Date: 20210420
  Serious: Yes (Life-Threatening, Hospitalization)
  Sender: FDA-Public Use
  Company Number: CA-IPSEN BIOPHARMACEUTICALS, INC.-2021-05788

PATIENT
  Age: 55 Year
  Sex: Male

DRUGS (3)
  1. ZOPICLONE [Concomitant]
     Active Substance: ZOPICLONE
     Dosage: QHS/PRN
     Dates: end: 2021
  2. SOMATULINE AUTOGEL [Suspect]
     Active Substance: LANREOTIDE ACETATE
     Indication: NEUROENDOCRINE TUMOUR
     Route: 058
     Dates: start: 20210106, end: 2021
  3. ZOFRAN [Concomitant]
     Active Substance: ONDANSETRON HYDROCHLORIDE
     Dosage: AS REQUIRED (PRN)
     Dates: end: 2021

REACTIONS (2)
  - Coma [Recovered/Resolved]
  - Hypoglycaemia [Unknown]

NARRATIVE: CASE EVENT DATE: 20210217
